FAERS Safety Report 8951695 (Version 1)
Quarter: 2012Q4

REPORT INFORMATION
  Report Type: Report from Study
  Country: US (occurrence: US)
  Receive Date: 20121204
  Receipt Date: 20121204
  Transmission Date: 20130627
  Serious: Yes (Other)
  Sender: FDA-Public Use
  Company Number: US-ABBOTT-12P-163-1013400-00

PATIENT
  Age: 22 Year
  Sex: Female
  Weight: 68.1 kg

DRUGS (6)
  1. HUMIRA [Suspect]
     Indication: RHEUMATOID ARTHRITIS
     Dates: start: 201111
  2. HUMIRA [Suspect]
  3. UNKNOWN PAIN MEDICATION [Suspect]
     Indication: PRODUCT USED FOR UNKNOWN INDICATION
  4. UNKNOWN BIRTH CONTROL [Concomitant]
     Indication: CONTRACEPTION
     Route: 048
  5. LORATAB [Concomitant]
     Indication: RHEUMATOID ARTHRITIS
  6. PREDNISONE [Concomitant]
     Indication: RHEUMATOID ARTHRITIS

REACTIONS (4)
  - Pyrexia [Recovered/Resolved]
  - Sinusitis [Recovered/Resolved]
  - Nausea [Recovered/Resolved]
  - Tonsillectomy [Unknown]
